FAERS Safety Report 9664212 (Version 2)
Quarter: 2014Q2

REPORT INFORMATION
  Report Type: Spontaneous
  Country: US (occurrence: US)
  Receive Date: 20131101
  Receipt Date: 20140521
  Transmission Date: 20141212
  Serious: Yes (Hospitalization)
  Sender: FDA-Public Use
  Company Number: US-B.I. PHARMACEUTICALS,INC./RIDGEFIELD-2013-BI-34149BP

PATIENT
  Sex: Male
  Weight: 92.99 kg

DRUGS (21)
  1. PRADAXA [Suspect]
     Indication: ATRIAL FIBRILLATION
     Dosage: 300 MG
     Route: 048
     Dates: start: 20111201, end: 201202
  2. HUMULIN 70/30 [Concomitant]
     Dosage: 30 UNITS EVERY AM AND PM
     Route: 065
     Dates: start: 2005
  3. CRESTOR [Concomitant]
     Dosage: 10 MG
     Route: 048
     Dates: start: 2005
  4. LEVOTHYROXINE [Concomitant]
     Dosage: 50 MCG
     Route: 048
     Dates: start: 2005
  5. COREG [Concomitant]
     Dosage: 12.5 MG
     Route: 048
     Dates: start: 2005
  6. ASPIRIN [Concomitant]
     Dosage: 81 MG
     Route: 048
     Dates: start: 2005
  7. NEURONTIN [Concomitant]
     Dosage: 4 ANZ
     Route: 065
     Dates: start: 2005, end: 2012
  8. LASIX [Concomitant]
     Dosage: 40 MG
     Route: 065
     Dates: start: 2005
  9. TRAZODONE [Concomitant]
     Route: 048
     Dates: start: 2005, end: 2012
  10. CIPRO [Concomitant]
     Route: 065
     Dates: start: 2005, end: 2012
  11. COUMADIN [Concomitant]
     Dosage: 1 ANZ
     Route: 048
     Dates: end: 20120301
  12. COUMADIN [Concomitant]
     Dosage: 1/2 TAB WED AND SUN
     Route: 048
  13. OMEPRAZOLE [Concomitant]
     Dosage: 40 MG
     Route: 048
  14. POTASSIUM CHLORIDE [Concomitant]
     Dosage: 10 MEQ
     Route: 048
  15. NITROLINGUAL [Concomitant]
     Indication: ANGINA PECTORIS
     Route: 065
  16. IMODIUM [Concomitant]
     Route: 065
  17. PROMETHAZINE HCL [Concomitant]
     Indication: NAUSEA
     Route: 048
  18. PLETAL [Concomitant]
     Route: 048
  19. QUESTRAN [Concomitant]
     Dosage: PACKET
     Route: 065
  20. CLARITIN [Concomitant]
     Dosage: 10 MG
     Route: 048
  21. TRAMADOL [Concomitant]
     Route: 048

REACTIONS (3)
  - Gastrointestinal haemorrhage [Unknown]
  - Anaemia [Unknown]
  - Angina pectoris [Recovered/Resolved]
